FAERS Safety Report 9012312 (Version 1)
Quarter: 2012Q4

REPORT INFORMATION
  Report Type: Spontaneous
  Country: US (occurrence: None)
  Receive Date: 20121231
  Receipt Date: 20121231
  Transmission Date: 20130627
  Serious: Yes (Other)
  Sender: FDA-Public Use
  Company Number: 2012P1067144

PATIENT
  Age: 17 Year
  Sex: Male
  Weight: 83 kg

DRUGS (1)
  1. MYORISAN 40 MG [Suspect]
     Indication: ACNE
     Route: 048
     Dates: start: 20121105, end: 20121210

REACTIONS (6)
  - Mood altered [None]
  - Malaise [None]
  - Blood cholesterol increased [None]
  - Blood triglycerides increased [None]
  - Mental status changes [None]
  - Depression [None]
